FAERS Safety Report 10210947 (Version 1)
Quarter: 2014Q2

REPORT INFORMATION
  Report Type: Spontaneous
  Country: BR (occurrence: BR)
  Receive Date: 20140602
  Receipt Date: 20140602
  Transmission Date: 20141212
  Serious: Yes (Other)
  Sender: FDA-Public Use
  Company Number: BR-BRISTOL-MYERS SQUIBB COMPANY-20802955

PATIENT
  Age: 73 Year
  Sex: Male
  Weight: 40 kg

DRUGS (2)
  1. REYATAZ CAPS 150 MG [Suspect]
     Indication: HIV INFECTION
  2. RITONAVIR [Concomitant]
     Indication: HIV INFECTION

REACTIONS (7)
  - Bladder cancer [Unknown]
  - Pruritus [Unknown]
  - Back pain [Unknown]
  - Aphthous stomatitis [Unknown]
  - Blister [Unknown]
  - Syncope [Unknown]
  - Scrotal disorder [Unknown]
